FAERS Safety Report 6136285-3 (Version None)
Quarter: 2009Q1

REPORT INFORMATION
  Report Type: 
  Country: None (occurrence: None)
  Receive Date: 20090330
  Receipt Date: 20090320
  Transmission Date: 20090719
  Serious: Yes (Other)
  Sender: FDA-Public Use
  Company Number: SA-ASTRAZENECA-2009SE01227

PATIENT
  Age: 58 Year
  Sex: Female

DRUGS (3)
  1. MARCAINE HEAVY (ASTRAZENECA ISTANBUL) [Suspect]
     Indication: ANAESTHESIA
     Route: 037
  2. FENTANYL-25 [Concomitant]
     Indication: ANAESTHESIA
     Route: 037
  3. BUPIVACAINE+ FENTANYL [Concomitant]
     Indication: ANAESTHESIA
     Dosage: 0.125% BUPIVACAINE, 2MCG/ML FENTANYL
     Route: 008

REACTIONS (4)
  - POOR QUALITY DRUG ADMINISTERED [None]
  - SENSATION OF HEAVINESS [None]
  - SENSORY LOSS [None]
  - URINARY RETENTION [None]
